FAERS Safety Report 16739778 (Version 1)
Quarter: 2019Q3

REPORT INFORMATION
  Report Type: Spontaneous
  Country: PT (occurrence: PT)
  Receive Date: 20190826
  Receipt Date: 20190826
  Transmission Date: 20191005
  Serious: Yes (Other)
  Sender: FDA-Public Use
  Company Number: PT-MYLANLABS-2019M1077918

PATIENT
  Age: 51 Year
  Sex: Female

DRUGS (9)
  1. METFORMIN [Suspect]
     Active Substance: METFORMIN HYDROCHLORIDE
     Indication: WEIGHT CONTROL
     Dosage: COMPOUNDED PREPARATION
     Route: 065
  2. CHLORDIAZEPOXIDE. [Suspect]
     Active Substance: CHLORDIAZEPOXIDE
     Indication: WEIGHT CONTROL
     Dosage: COMPOUNDED PREPARATION
     Route: 065
  3. BUPROPION. [Suspect]
     Active Substance: BUPROPION
     Indication: WEIGHT CONTROL
     Dosage: COMPOUNDED PREPARATION
     Route: 065
  4. TOPIRAMATE. [Suspect]
     Active Substance: TOPIRAMATE
     Indication: WEIGHT CONTROL
     Dosage: COMPOUNDED PREPARATION
     Route: 065
  5. CASCARA SAGRADA                    /00143201/ [Suspect]
     Active Substance: FRANGULA PURSHIANA BARK
     Indication: WEIGHT CONTROL
     Dosage: COMPOUNDED PREPARATION
     Route: 065
  6. HOODIA GORDONII [Suspect]
     Active Substance: DIETARY SUPPLEMENT
     Indication: WEIGHT CONTROL
     Dosage: COMPOUNDED PREPARATION
     Route: 065
  7. FUROSEMIDE. [Suspect]
     Active Substance: FUROSEMIDE
     Indication: WEIGHT CONTROL
     Dosage: COMPOUNDED PREPARATION
     Route: 065
  8. ETHINYLESTRADIOL/GESTODENE [Interacting]
     Active Substance: ETHINYL ESTRADIOL\GESTODENE
     Indication: CONTRACEPTION
     Route: 048
  9. CITRUS SINENSIS [Suspect]
     Active Substance: HERBALS\ORANGE
     Indication: WEIGHT CONTROL
     Dosage: COMPOUNDED PREPARATION
     Route: 065

REACTIONS (3)
  - Intentional product misuse [Unknown]
  - Drug interaction [Unknown]
  - Cerebral venous thrombosis [Unknown]
